FAERS Safety Report 14322886 (Version 1)
Quarter: 2017Q4

REPORT INFORMATION
  Report Type: Report from Study
  Country: US (occurrence: US)
  Receive Date: 20171226
  Receipt Date: 20171226
  Transmission Date: 20180321
  Serious: Yes (Hospitalization)
  Sender: FDA-Public Use
  Company Number: US-UCBSA-2017051967

PATIENT
  Age: 51 Year
  Sex: Male

DRUGS (3)
  1. LACOSAMIDE. [Suspect]
     Active Substance: LACOSAMIDE
     Indication: SEIZURE
     Dosage: UNK
     Dates: start: 20171103, end: 201712
  2. LACOSAMIDE. [Suspect]
     Active Substance: LACOSAMIDE
     Dosage: 300 MG, 2X/DAY (BID)
     Dates: start: 201712
  3. KEPPRA [Suspect]
     Active Substance: LEVETIRACETAM
     Indication: PRODUCT USED FOR UNKNOWN INDICATION
     Dosage: 2000 MG, 2X/DAY (BID)

REACTIONS (3)
  - Seizure [Recovered/Resolved]
  - Off label use [Unknown]
  - Overdose [Unknown]

NARRATIVE: CASE EVENT DATE: 20171208
